FAERS Safety Report 25106383 (Version 1)
Quarter: 2025Q1

REPORT INFORMATION
  Report Type: Spontaneous
  Country: US (occurrence: None)
  Receive Date: 20250320
  Receipt Date: 20250320
  Transmission Date: 20250408
  Serious: No
  Sender: FDA-CTU
  Company Number: None

PATIENT
  Age: 49 Year
  Sex: Male

DRUGS (2)
  1. SUCCINYLCHOLINE CHLORIDE [Suspect]
     Active Substance: SUCCINYLCHOLINE CHLORIDE
     Indication: Surgery
     Dates: start: 20250225, end: 20250225
  2. METHOHEXITAL SODIUM [Suspect]
     Active Substance: METHOHEXITAL SODIUM
     Indication: Surgery
     Dates: start: 20250225, end: 20250225

REACTIONS (3)
  - Cardiac arrest [None]
  - Bradycardia [None]
  - Ventricular tachycardia [None]

NARRATIVE: CASE EVENT DATE: 20250225
